FAERS Safety Report 4384079-1 (Version None)
Quarter: 2004Q2

REPORT INFORMATION
  Report Type: 
  Country: None (occurrence: None)
  Receive Date: 20040622
  Receipt Date: 20040622
  Transmission Date: 20050107
  Serious: Yes (Other)
  Sender: FDA-Public Use
  Company Number: None

PATIENT
  Age: 17 Year
  Sex: Male
  Weight: 40.8 kg

DRUGS (2)
  1. ROCEPHIN [Suspect]
     Indication: BRAIN ABSCESS
     Dosage: 2 GMS IV QD
     Route: 042
     Dates: start: 20040528, end: 20040609
  2. ROCEPHIN [Suspect]

REACTIONS (2)
  - DIZZINESS [None]
  - FEELING COLD [None]
